FAERS Safety Report 8802828 (Version 3)
Quarter: 2015Q1

REPORT INFORMATION
  Report Type: Report from Study
  Country: US (occurrence: US)
  Receive Date: 20120921
  Receipt Date: 20150326
  Transmission Date: 20150721
  Serious: Yes (Death)
  Sender: FDA-Public Use
  Company Number: US-ROCHE-1125958

PATIENT
  Sex: Female

DRUGS (8)
  1. PREDNISONE. [Concomitant]
     Active Substance: PREDNISONE
     Route: 065
  2. ZOFRAN [Concomitant]
     Active Substance: ONDANSETRON HYDROCHLORIDE
     Indication: DECREASED APPETITE
  3. AMBIEN [Concomitant]
     Active Substance: ZOLPIDEM TARTRATE
     Dosage: ONE TABLET AT BED TIME
     Route: 048
  4. AVASTIN [Suspect]
     Active Substance: BEVACIZUMAB
     Indication: BRAIN NEOPLASM MALIGNANT
     Route: 042
     Dates: start: 20061221
  5. ZOFRAN [Concomitant]
     Active Substance: ONDANSETRON HYDROCHLORIDE
     Indication: NAUSEA
  6. KEPPRA [Concomitant]
     Active Substance: LEVETIRACETAM
     Route: 065
  7. CAMPTOTHECIN [Concomitant]
     Active Substance: CAMPTOTHECIN
     Route: 042
  8. DECADRON [Concomitant]
     Active Substance: DEXAMETHASONE
     Indication: PAIN
     Route: 065

REACTIONS (15)
  - Aphasia [Unknown]
  - Abdominal pain [Unknown]
  - Headache [Unknown]
  - Death [Fatal]
  - Feeling abnormal [Unknown]
  - Nausea [Unknown]
  - Oropharyngeal pain [Unknown]
  - Somnolence [Unknown]
  - Confusional state [Unknown]
  - Fatigue [Unknown]
  - Off label use [Unknown]
  - Vomiting [Unknown]
  - Rhinorrhoea [Unknown]
  - Epistaxis [Unknown]
  - Seizure [Unknown]
